FAERS Safety Report 24938973 (Version 4)
Quarter: 2025Q3

REPORT INFORMATION
  Report Type: Spontaneous
  Country: US (occurrence: US)
  Receive Date: 20250206
  Receipt Date: 20250829
  Transmission Date: 20251021
  Serious: Yes (Hospitalization)
  Sender: PFIZER
  Company Number: US-PFIZER INC-PV202500014005

PATIENT
  Age: 73 Year
  Sex: Female

DRUGS (2)
  1. IBRANCE [Suspect]
     Active Substance: PALBOCICLIB
     Dates: start: 20250201
  2. IBRANCE [Suspect]
     Active Substance: PALBOCICLIB

REACTIONS (27)
  - Encephalitis [Unknown]
  - Tremor [Unknown]
  - Tension [Recovered/Resolved]
  - Feeling abnormal [Recovered/Resolved]
  - Arthralgia [Not Recovered/Not Resolved]
  - Blood pressure increased [Unknown]
  - Bone pain [Unknown]
  - Back pain [Unknown]
  - Dry skin [Unknown]
  - Skin exfoliation [Unknown]
  - Asthenia [Unknown]
  - Fatigue [Unknown]
  - Rash [Unknown]
  - Pruritus [Unknown]
  - Visual impairment [Unknown]
  - Skin disorder [Unknown]
  - Swelling [Unknown]
  - Erythema [Unknown]
  - Feeling hot [Unknown]
  - Fingerprint loss [Unknown]
  - Headache [Unknown]
  - Weight decreased [Unknown]
  - Decreased appetite [Unknown]
  - Balance disorder [Unknown]
  - Limb discomfort [Unknown]
  - Urinary tract infection [Unknown]
  - Product dose omission in error [Unknown]

NARRATIVE: CASE EVENT DATE: 20250101
